FAERS Safety Report 8321385-X (Version None)
Quarter: 2012Q2

REPORT INFORMATION
  Report Type: 
  Country: None (occurrence: None)
  Receive Date: 20120430
  Receipt Date: 20120423
  Transmission Date: 20120825
  Serious: Yes (Hospitalization)
  Sender: FDA-Public Use
  Company Number: DE-ASTELLAS-2012EU003039

PATIENT
  Age: 62 Year
  Sex: Male
  Weight: 110 kg

DRUGS (4)
  1. PROGRAF [Suspect]
     Indication: RENAL TRANSPLANT
     Dosage: 1 MG, BID
     Route: 048
     Dates: start: 20101201
  2. MYDOCALM [Interacting]
     Indication: INTERVERTEBRAL DISC PROTRUSION
     Dosage: 150 MG, UNKNOWN/D
     Route: 048
     Dates: start: 20110926, end: 20111004
  3. MYDOCALM [Interacting]
     Dosage: 50 MG, UNKNOWN/D
     Route: 065
  4. MYDOCALM [Interacting]
     Dosage: 450 MG, UNKNOWN/D
     Route: 065

REACTIONS (2)
  - DRUG INTERACTION [None]
  - DRUG LEVEL INCREASED [None]
